FAERS Safety Report 7244169-2 (Version None)
Quarter: 2011Q1

REPORT INFORMATION
  Report Type: 
  Country: None (occurrence: None)
  Receive Date: 20110119
  Receipt Date: 20110119
  Transmission Date: 20110831
  Serious: Yes (Hospitalization)
  Sender: FDA-Public Use
  Company Number: None

PATIENT
  Age: 68 Year
  Sex: Male
  Weight: 77.1115 kg

DRUGS (1)
  1. ALCHOLE SWABS TRIAD GROUP [Suspect]
     Indication: INFECTION PROPHYLAXIS
     Dosage: ONCE 4 X A DAY OTHER
     Route: 050
     Dates: start: 20101115, end: 20110113

REACTIONS (3)
  - MALAISE [None]
  - PRODUCT CONTAMINATION MICROBIAL [None]
  - BACILLUS INFECTION [None]
